FAERS Safety Report 12181174 (Version 1)
Quarter: 2016Q1

REPORT INFORMATION
  Report Type: Spontaneous
  Country: IT (occurrence: IT)
  Receive Date: 20160315
  Receipt Date: 20160315
  Transmission Date: 20160526
  Serious: Yes (Hospitalization)
  Sender: FDA-Public Use
  Company Number: IT-BAYER-2016-046202

PATIENT
  Age: 85 Year
  Sex: Male

DRUGS (5)
  1. KARVEA [Concomitant]
     Active Substance: IRBESARTAN
     Dosage: UNK
  2. TENORMIN [Concomitant]
     Active Substance: ATENOLOL
     Dosage: UNK
  3. ACETYLSALICYLIC ACID({=100 MG) [Suspect]
     Active Substance: ASPIRIN
     Indication: THROMBOSIS PROPHYLAXIS
     Dosage: 100 MG, QD
     Route: 048
     Dates: start: 20150101, end: 20151011
  4. TORVAST [Concomitant]
     Active Substance: ATORVASTATIN
     Dosage: UNK
  5. AULIN [Concomitant]
     Active Substance: NIMESULIDE
     Dosage: 1 DF, QD

REACTIONS (1)
  - Muscular weakness [Unknown]

NARRATIVE: CASE EVENT DATE: 20151011
